FAERS Safety Report 24380990 (Version 2)
Quarter: 2024Q4

REPORT INFORMATION
  Report Type: Spontaneous
  Country: ES (occurrence: ES)
  Receive Date: 20240930
  Receipt Date: 20241011
  Transmission Date: 20250115
  Serious: Yes (Hospitalization)
  Sender: TEVA
  Company Number: ES-TEVA-VS-3247672

PATIENT
  Age: 45 Year
  Sex: Female

DRUGS (6)
  1. HYDROXYCHLOROQUINE [Suspect]
     Active Substance: HYDROXYCHLOROQUINE
     Indication: Systemic lupus erythematosus
     Dosage: ESTIMATED TOTAL CUMULATIVE DOSE 2774 G
     Route: 065
  2. AZATHIOPRINE [Concomitant]
     Active Substance: AZATHIOPRINE
     Indication: Prosthesis user
  3. PREDNISONE [Concomitant]
     Active Substance: PREDNISONE
     Indication: Systemic lupus erythematosus
  4. WARFARIN [Concomitant]
     Active Substance: WARFARIN
     Indication: Transient ischaemic attack
     Dosage: 49.5 MG/WEEK
  5. AMIODARONE [Concomitant]
     Active Substance: AMIODARONE
     Indication: Transient ischaemic attack
  6. COLCHICINE [Concomitant]
     Active Substance: COLCHICINE
     Indication: Transient ischaemic attack

REACTIONS (2)
  - Cardiomyopathy [Recovering/Resolving]
  - Cardiac failure acute [Recovering/Resolving]
